FAERS Safety Report 6747552-4 (Version None)
Quarter: 2010Q2

REPORT INFORMATION
  Report Type: 
  Country: None (occurrence: None)
  Receive Date: 20100528
  Receipt Date: 20100519
  Transmission Date: 20101027
  Serious: Yes (Other)
  Sender: FDA-Public Use
  Company Number: CH-PURDUE-DEU-2010-0006264

PATIENT
  Age: 52 Year
  Sex: Female

DRUGS (5)
  1. MORPHINE SULFATE INJECTABLE [Suspect]
     Indication: BACK PAIN
     Dosage: 7 MG, DAILY
     Route: 037
     Dates: end: 20070101
  2. MORPHINE SULFATE INJECTABLE [Suspect]
     Dosage: UNK
     Route: 037
  3. MORPHINE SULFATE INJECTABLE [Suspect]
     Dosage: 6 MG, DAILY
     Route: 037
     Dates: start: 20050801
  4. ANALGESICS [Concomitant]
  5. ORAL OPIOIDS [Concomitant]
     Indication: BACK PAIN

REACTIONS (3)
  - HYPOAESTHESIA [None]
  - INJECTION SITE NODULE [None]
  - SENSORY LOSS [None]
